FAERS Safety Report 4468902-8 (Version None)
Quarter: 2004Q4

REPORT INFORMATION
  Report Type: 
  Country: None (occurrence: None)
  Receive Date: 20041005
  Receipt Date: 20041005
  Transmission Date: 20050328
  Serious: Yes (Hospitalization)
  Sender: FDA-Public Use
  Company Number: None

PATIENT
  Sex: Female
  Weight: 83.9154 kg

DRUGS (7)
  1. PENTASA [Suspect]
     Indication: CROHN'S DISEASE
     Dosage: 250 MG 4 PO QID
     Route: 048
     Dates: start: 20040201, end: 20040929
  2. ULTRAM [Suspect]
     Indication: ARTHRALGIA
     Dosage: 1 PO Q 6 HRS PRN
     Route: 048
     Dates: end: 20040929
  3. ULTRAM [Suspect]
     Indication: BACK PAIN
     Dosage: 1 PO Q 6 HRS PRN
     Route: 048
     Dates: end: 20040929
  4. FOLATE [Concomitant]
  5. PREVACID [Concomitant]
  6. SULFASALAZINE [Concomitant]
  7. ... [Concomitant]

REACTIONS (12)
  - ARTHRALGIA [None]
  - BLOOD URINE [None]
  - CONDITION AGGRAVATED [None]
  - LIVER FUNCTION TEST ABNORMAL [None]
  - LOCAL SWELLING [None]
  - LYMPHADENOPATHY [None]
  - MYALGIA [None]
  - OEDEMA PERIPHERAL [None]
  - PRURITUS [None]
  - PURPURA [None]
  - RASH MACULO-PAPULAR [None]
  - SKIN SWELLING [None]
